FAERS Safety Report 8840819 (Version 2)
Quarter: 2013Q1

REPORT INFORMATION
  Report Type: Report from Study
  Country: BE (occurrence: BE)
  Receive Date: 20121015
  Receipt Date: 20130101
  Transmission Date: 20140127
  Serious: Yes (Other)
  Sender: FDA-Public Use
  Company Number: BE-ROCHE-1140085

PATIENT
  Age: 57 Year
  Sex: Female
  Weight: 58.1 kg

DRUGS (17)
  1. TRASTUZUMAB [Suspect]
     Indication: BREAST CANCER METASTATIC
     Dosage: 14 CYCLES
     Route: 065
     Dates: start: 200912, end: 201004
  2. TRASTUZUMAB [Suspect]
     Route: 065
     Dates: start: 201004, end: 201006
  3. TRASTUZUMAB [Suspect]
     Route: 065
     Dates: start: 201104, end: 201106
  4. CAPECITABINE [Suspect]
     Indication: BREAST CANCER METASTATIC
     Route: 065
     Dates: start: 201004, end: 201006
  5. CAPECITABINE [Suspect]
     Route: 065
     Dates: start: 201109, end: 201203
  6. ADO-TRASTUZUMAB EMTANSINE [Suspect]
     Indication: BREAST CANCER METASTATIC
     Route: 065
     Dates: start: 20121015, end: 20121126
  7. LAPATINIB [Suspect]
     Indication: BREAST CANCER METASTATIC
     Route: 065
     Dates: start: 201109, end: 201203
  8. CARBOPLATIN [Suspect]
     Indication: BREAST CANCER METASTATIC
     Route: 065
     Dates: start: 201203, end: 201206
  9. GEMCITABINE [Suspect]
     Indication: BREAST CANCER METASTATIC
     Route: 065
     Dates: start: 201203, end: 201206
  10. CYCLOPHOSPHAMIDE [Suspect]
     Indication: BREAST CANCER METASTATIC
     Route: 065
     Dates: start: 199506
  11. CYCLOPHOSPHAMIDE [Suspect]
     Route: 065
     Dates: start: 200901, end: 200905
  12. CYCLOPHOSPHAMIDE [Suspect]
     Route: 065
     Dates: start: 201012, end: 201102
  13. CYCLOPHOSPHAMIDE [Suspect]
     Route: 065
     Dates: start: 201206, end: 201207
  14. METHOTREXATE [Suspect]
     Indication: BREAST CANCER METASTATIC
     Route: 065
     Dates: start: 199506
  15. METHOTREXATE [Suspect]
     Route: 065
     Dates: start: 201206, end: 201207
  16. TAMOXIFEN [Suspect]
     Indication: BREAST CANCER METASTATIC
     Route: 065
     Dates: start: 199506
  17. TAMOXIFEN [Suspect]
     Route: 065
     Dates: start: 201207

REACTIONS (1)
  - Disease progression [Unknown]
